FAERS Safety Report 23679463 (Version 1)
Quarter: 2024Q1

REPORT INFORMATION
  Report Type: Report from Study
  Country: DK (occurrence: DK)
  Receive Date: 20240327
  Receipt Date: 20240327
  Transmission Date: 20240410
  Serious: Yes (Death, Hospitalization, Other)
  Sender: FDA-Public Use
  Company Number: DK-JNJFOC-20240363615

PATIENT
  Age: 83 Year
  Sex: Female

DRUGS (1)
  1. IBRUTINIB [Suspect]
     Active Substance: IBRUTINIB
     Indication: Mantle cell lymphoma
     Route: 048
     Dates: start: 20200117, end: 20200120

REACTIONS (3)
  - Disease progression [Fatal]
  - Upper gastrointestinal haemorrhage [Recovered/Resolved]
  - Drug ineffective [Unknown]
